FAERS Safety Report 8672378 (Version 2)
Quarter: 2012Q4

REPORT INFORMATION
  Report Type: 
  Country: US (occurrence: US)
  Receive Date: 20120719
  Receipt Date: 20121002
  Transmission Date: 20130627
  Serious: Yes (Hospitalization, Other)
  Sender: FDA-Public Use
  Company Number: US-JNJFOC-20120705823

PATIENT
  Age: 73 Year
  Sex: Male
  Weight: 74.5 kg

DRUGS (28)
  1. XARELTO [Suspect]
     Indication: THROMBOSIS PROPHYLAXIS
     Route: 048
     Dates: start: 20120619, end: 20120626
  2. XARELTO [Suspect]
     Indication: KNEE ARTHROPLASTY
     Route: 048
     Dates: start: 20120619, end: 20120626
  3. ASA [Concomitant]
     Indication: THROMBOSIS PROPHYLAXIS
     Route: 048
     Dates: end: 20120611
  4. ASA [Concomitant]
     Indication: THROMBOSIS PROPHYLAXIS
     Route: 048
     Dates: start: 20120621, end: 20120626
  5. PLAVIX [Concomitant]
     Indication: ANTIPLATELET THERAPY
     Route: 048
  6. CENTRUM SILVER [Concomitant]
     Route: 048
     Dates: end: 20120617
  7. CENTRUM SILVER [Concomitant]
     Route: 048
     Dates: start: 20120620, end: 20120626
  8. FIBER SUPPLEMENT [Concomitant]
     Route: 048
     Dates: start: 20120620, end: 20120626
  9. FIBER SUPPLEMENT [Concomitant]
     Route: 048
     Dates: end: 20120618
  10. FLEXERIL [Concomitant]
     Indication: MUSCLE RELAXANT THERAPY
     Dates: end: 20120625
  11. COLACE [Concomitant]
     Indication: ABNORMAL FAECES
     Route: 048
     Dates: start: 20120620, end: 20120626
  12. FERROUS SULFATE [Concomitant]
     Indication: IRON DEFICIENCY
     Route: 048
     Dates: start: 20120620, end: 20120626
  13. COREG [Concomitant]
     Indication: HYPERTENSION
     Route: 048
     Dates: end: 20120618
  14. COREG [Concomitant]
     Indication: HYPERTENSION
     Route: 048
     Dates: start: 20120620, end: 20120626
  15. LEVOCETIRIZINE [Concomitant]
     Indication: MULTIPLE ALLERGIES
     Route: 048
     Dates: start: 20120620, end: 20120626
  16. LEVOCETIRIZINE [Concomitant]
     Indication: MULTIPLE ALLERGIES
     Route: 048
     Dates: end: 20120617
  17. PROTONIX [Concomitant]
     Indication: GASTROOESOPHAGEAL REFLUX DISEASE
     Route: 048
     Dates: start: 20120121, end: 20120626
  18. PROTONIX [Concomitant]
     Indication: GASTROOESOPHAGEAL REFLUX DISEASE
     Route: 048
     Dates: end: 20120618
  19. MIRALAX [Concomitant]
     Indication: CONSTIPATION
     Route: 048
     Dates: start: 20120621, end: 20120626
  20. NORCO [Concomitant]
     Indication: PROCEDURAL PAIN
     Dosage: dosed as needed
     Route: 048
     Dates: start: 20120620, end: 20120626
  21. PRAVASTATIN [Concomitant]
     Indication: HYPERLIPIDAEMIA
     Route: 048
     Dates: end: 20120617
  22. PRAVASTATIN [Concomitant]
     Indication: HYPERLIPIDAEMIA
     Route: 048
     Dates: start: 20120620, end: 20120626
  23. CALCIUM AND VITAMIN D [Concomitant]
  24. CO-Q10 [Concomitant]
     Route: 048
     Dates: end: 20120617
  25. OMEGA 3 [Concomitant]
     Dates: end: 20120617
  26. VITAMIN B 12 [Concomitant]
     Route: 048
     Dates: end: 20120617
  27. VITAMIN C [Concomitant]
     Route: 048
     Dates: end: 20120617
  28. VITAMIN D [Concomitant]
     Route: 048
     Dates: end: 20120617

REACTIONS (1)
  - Pulmonary embolism [Recovering/Resolving]
